FAERS Safety Report 11627798 (Version 1)
Quarter: 2015Q4

REPORT INFORMATION
  Report Type: Spontaneous
  Country: US (occurrence: US)
  Receive Date: 20151014
  Receipt Date: 20151014
  Transmission Date: 20160304
  Serious: No
  Sender: FDA-Public Use
  Company Number: US-SUN PHARMACEUTICAL INDUSTRIES LTD-2015US-91941

PATIENT
  Sex: Female

DRUGS (3)
  1. LORATADINE AND PSEUDOEPHEDRINE [Suspect]
     Active Substance: LORATADINE\PSEUDOEPHEDRINE SULFATE
     Indication: SINUS CONGESTION
     Dosage: UNK
     Route: 065
     Dates: start: 20150105
  2. LORATADINE AND PSEUDOEPHEDRINE [Suspect]
     Active Substance: LORATADINE\PSEUDOEPHEDRINE SULFATE
     Indication: LACRIMATION INCREASED
  3. LORATADINE AND PSEUDOEPHEDRINE [Suspect]
     Active Substance: LORATADINE\PSEUDOEPHEDRINE SULFATE
     Indication: SNEEZING

REACTIONS (1)
  - Drug ineffective [Unknown]
